FAERS Safety Report 22592987 (Version 2)
Quarter: 2023Q2

REPORT INFORMATION
  Report Type: Spontaneous
  Country: BR (occurrence: BR)
  Receive Date: 20230613
  Receipt Date: 20230626
  Transmission Date: 20230721
  Serious: Yes (Other)
  Sender: FDA-Public Use
  Company Number: BR-009507513-2306BRA005311

PATIENT
  Age: 39 Year
  Sex: Female

DRUGS (5)
  1. KEYTRUDA [Suspect]
     Active Substance: PEMBROLIZUMAB
     Indication: Triple negative breast cancer
     Dosage: 200 MG EVERY 3 WEEKS, 4 CYCLES
  2. KEYTRUDA [Suspect]
     Active Substance: PEMBROLIZUMAB
     Dosage: 200 MG EVERY 3 WEEKS, 4 CYCLES
  3. CARBOPLATIN [Suspect]
     Active Substance: CARBOPLATIN
     Indication: Triple negative breast cancer
     Dosage: 4 CYCLES
  4. PACLITAXEL [Suspect]
     Active Substance: PACLITAXEL
     Indication: Triple negative breast cancer
     Dosage: 4 CYCLES
  5. CYCLOPHOSPHAMIDE\DOXORUBICIN HYDROCHLORIDE [Suspect]
     Active Substance: CYCLOPHOSPHAMIDE\DOXORUBICIN HYDROCHLORIDE
     Indication: Triple negative breast cancer
     Dosage: 4 CYCLES

REACTIONS (3)
  - Neutropenia [Unknown]
  - Decreased appetite [Unknown]
  - Nausea [Unknown]
